FAERS Safety Report 20959987 (Version 1)
Quarter: 2022Q2

REPORT INFORMATION
  Report Type: Report from Study
  Country: GB (occurrence: GB)
  Receive Date: 20220615
  Receipt Date: 20220615
  Transmission Date: 20220720
  Serious: Yes (Other)
  Sender: FDA-Public Use
  Company Number: GB-NOVARTISPH-NVSC2022GB132855

PATIENT
  Sex: Female

DRUGS (1)
  1. KESIMPTA [Suspect]
     Active Substance: OFATUMUMAB
     Indication: Relapsing-remitting multiple sclerosis
     Dosage: 20 MG, QMO (WEEK 0, WEEK 1, WEEK 2 + WEEK 4, THEN MONTHLY)
     Route: 058
     Dates: start: 20220606

REACTIONS (5)
  - Paralysis [Recovered/Resolved]
  - Movement disorder [Recovered/Resolved]
  - Fall [Recovered/Resolved]
  - Feeling cold [Recovered/Resolved]
  - Fear [Recovered/Resolved]

NARRATIVE: CASE EVENT DATE: 20220606
